FAERS Safety Report 9970618 (Version 1)
Quarter: 2014Q1

REPORT INFORMATION
  Report Type: Report from Study
  Country: US (occurrence: US)
  Receive Date: 20140306
  Receipt Date: 20140306
  Transmission Date: 20141002
  Serious: No
  Sender: FDA-Public Use
  Company Number: US-ABBVIE-13P-163-1147781-00

PATIENT
  Age: 79 Year
  Sex: Female

DRUGS (8)
  1. HUMIRA [Suspect]
     Indication: PSORIASIS
     Dates: start: 20130827, end: 20130827
  2. HUMIRA [Suspect]
     Dates: start: 20130903
  3. FISH OIL [Concomitant]
     Indication: CARDIAC DISORDER
     Dosage: DAILY
  4. ASA [Concomitant]
     Indication: CARDIAC DISORDER
     Dosage: 81 MG BY MOUTH DAILY
  5. BENAZEPRIL [Concomitant]
     Indication: HYPERTENSION
     Dosage: 10-12.5 MG BY MOUTH DAILY
  6. ACTIVIA [Concomitant]
     Indication: ROUTINE HEALTH MAINTENANCE
  7. FOSAMAX [Concomitant]
     Indication: OSTEOPOROSIS
     Dosage: 70 MG BY MOUTH WEEKLY
  8. TRAMADOL [Concomitant]
     Indication: PAIN IN EXTREMITY

REACTIONS (1)
  - Pain in extremity [Not Recovered/Not Resolved]
